FAERS Safety Report 5392323-7 (Version None)
Quarter: 2007Q3

REPORT INFORMATION
  Report Type: 
  Country: None (occurrence: None)
  Receive Date: 20070720
  Receipt Date: 20070716
  Transmission Date: 20080115
  Serious: Yes (Hospitalization, Other)
  Sender: FDA-Public Use
  Company Number: PHBS2007BR12013

PATIENT
  Age: 63 Year
  Sex: Female
  Weight: 85 kg

DRUGS (9)
  1. GALVUS MET [Suspect]
     Indication: DIABETES MELLITUS
     Dosage: UNK, TID
     Route: 048
  2. BUFERIN [Concomitant]
     Indication: ANTICOAGULANT THERAPY
     Dosage: 81 MG, QD
     Route: 048
  3. EUTHYROX [Concomitant]
     Indication: HYPOTHYROIDISM
     Dosage: 125 MG, QD
     Route: 048
  4. LANTUS [Concomitant]
     Indication: DIABETES MELLITUS
     Dosage: 22 IU, QD
  5. NOVORAPID [Concomitant]
     Dosage: UNK, BID
  6. COZAAR [Concomitant]
     Indication: HYPERTENSION
     Dosage: 50 MG, QD
     Route: 048
  7. FINASTERIDE [Concomitant]
     Dosage: 1 MG, QD
     Route: 048
  8. DYTORIN [Concomitant]
     Dosage: 0.5 DF, UNK
     Route: 048
  9. DALMADORM [Concomitant]
     Indication: SLEEP DISORDER
     Dosage: 0.5 DF, QD
     Route: 048

REACTIONS (3)
  - DRUG INEFFECTIVE [None]
  - HYPOGLYCAEMIC COMA [None]
  - HYPOTHERMIA [None]
